FAERS Safety Report 18796342 (Version 1)
Quarter: 2021Q1

REPORT INFORMATION
  Report Type: Spontaneous
  Country: JP (occurrence: JP)
  Receive Date: 20210127
  Receipt Date: 20210127
  Transmission Date: 20210419
  Serious: Yes (Hospitalization)
  Sender: FDA-Public Use
  Company Number: JP-ASTRAZENECA-2020SF72957

PATIENT
  Age: 53 Year
  Sex: Female

DRUGS (4)
  1. FERRUM [Concomitant]
     Active Substance: FERROUS FUMARATE
     Route: 065
     Dates: start: 20200721
  2. CRESTOR [Suspect]
     Active Substance: ROSUVASTATIN CALCIUM
     Indication: HYPERCHOLESTEROLAEMIA
     Route: 048
     Dates: start: 20200623, end: 20200716
  3. TELMISARTAN. [Concomitant]
     Active Substance: TELMISARTAN
     Route: 048
     Dates: start: 20180315
  4. AMLODIPINE [Concomitant]
     Active Substance: AMLODIPINE BESYLATE
     Route: 065
     Dates: start: 20180315

REACTIONS (5)
  - Myalgia [Recovered/Resolved]
  - Uterine leiomyosarcoma [Unknown]
  - Myalgia [Recovered/Resolved]
  - Blood creatine phosphokinase increased [Unknown]
  - Uterine leiomyoma [Unknown]

NARRATIVE: CASE EVENT DATE: 20200716
